FAERS Safety Report 23100536 (Version 1)
Quarter: 2023Q4

REPORT INFORMATION
  Report Type: Spontaneous
  Country: US (occurrence: None)
  Receive Date: 20231020
  Receipt Date: 20231020
  Transmission Date: 20240110
  Serious: Yes (Hospitalization)
  Sender: FDA-Public Use
  Company Number: None

PATIENT
  Sex: Male

DRUGS (1)
  1. RETACRIT [Suspect]
     Active Substance: EPOETIN ALFA-EPBX
     Indication: Nephrogenic anaemia
     Dosage: OTHER STRENGTH : 10000 U/ML;?FREQUENCY : EVERY OTHER WEEK;?
     Route: 058
     Dates: start: 202305

REACTIONS (3)
  - Food poisoning [None]
  - Heart rate increased [None]
  - Haemoglobin decreased [None]
